FAERS Safety Report 13756289 (Version 1)
Quarter: 2017Q3

REPORT INFORMATION
  Report Type: Spontaneous
  Country: US (occurrence: US)
  Receive Date: 20170714
  Receipt Date: 20170714
  Transmission Date: 20171127
  Serious: No
  Sender: FDA-Public Use
  Company Number: US-TEVA-787038ACC

PATIENT
  Sex: Male

DRUGS (1)
  1. NUVIGIL [Suspect]
     Active Substance: ARMODAFINIL

REACTIONS (1)
  - Somnolence [Unknown]
